FAERS Safety Report 18947396 (Version 1)
Quarter: 2021Q1

REPORT INFORMATION
  Report Type: Spontaneous
  Country: DE (occurrence: DE)
  Receive Date: 20210227
  Receipt Date: 20210227
  Transmission Date: 20210420
  Serious: Yes (Other)
  Sender: FDA-Public Use
  Company Number: DE-B.I. PHARMACEUTICALS,INC./RIDGEFIELD-2020-BI-065777

PATIENT
  Age: 74 Year
  Sex: Male

DRUGS (12)
  1. MULTIVITAMINS [VITAMINS NOS] [Concomitant]
     Active Substance: VITAMINS
     Indication: GASTRIC BYPASS
     Dosage: 1?0?0?0
  2. THYRONAJOD [Concomitant]
     Active Substance: LEVOTHYROXINE SODIUM\POTASSIUM IODIDE
     Indication: THYROID DISORDER
     Dosage: 1?0?0?0?50/150
  3. DEKRISTOL [Concomitant]
     Active Substance: CHOLECALCIFEROL
     Indication: GASTRIC BYPASS
     Dosage: 20000
  4. VITAMIN B12 [VITAMIN B12 NOS] [Concomitant]
     Active Substance: CYANOCOBALAMIN
     Indication: GASTRIC BYPASS
  5. ATORVASTATIN ABZ [Concomitant]
     Active Substance: ATORVASTATIN SODIUM
     Indication: LIPIDS ABNORMAL
     Dosage: 0?0?1?0
  6. DAIVOBET [BETAMETHASONE;CALCIPOTRIOL] [Concomitant]
     Indication: PSORIASIS
  7. BIOTIN [Concomitant]
     Active Substance: BIOTIN
     Indication: GASTRIC BYPASS
     Dosage: 1?0?0?0
  8. PRADAXA [Suspect]
     Active Substance: DABIGATRAN ETEXILATE MESYLATE
     Indication: ATRIAL FIBRILLATION
     Dosage: 1?0?1?0
     Route: 048
     Dates: start: 2020
  9. PANTOPRAZOL [PANTOPRAZOLE] [Concomitant]
     Active Substance: PANTOPRAZOLE
     Indication: PROPHYLAXIS
     Dosage: 1?0?0?0?40
  10. DAIVONEX [Concomitant]
     Active Substance: CALCIPOTRIENE
     Indication: PSORIASIS
  11. NEBIVOLOL HEUMANN [Concomitant]
     Indication: ARRHYTHMIA
     Dosage: 0?0?1?0
  12. ALFUZOSIN [Concomitant]
     Active Substance: ALFUZOSIN
     Indication: PROSTATIC DISORDER
     Dosage: 1?0?0?0

REACTIONS (7)
  - Visual impairment [Unknown]
  - Product quality issue [Unknown]
  - Wrong technique in product usage process [Recovered/Resolved]
  - Chromaturia [Recovered/Resolved]
  - Dysgeusia [Recovered/Resolved]
  - Onychoclasis [Unknown]
  - Therapeutic product effect increased [Unknown]

NARRATIVE: CASE EVENT DATE: 202010
